FAERS Safety Report 17129895 (Version 5)
Quarter: 2020Q3

REPORT INFORMATION
  Report Type: Spontaneous
  Country: US (occurrence: US)
  Receive Date: 20191209
  Receipt Date: 20200929
  Transmission Date: 20201102
  Serious: No
  Sender: FDA-Public Use
  Company Number: US-SA-2019SA338644

PATIENT

DRUGS (1)
  1. DUPIXENT [Suspect]
     Active Substance: DUPILUMAB
     Indication: ASTHMA
     Dosage: 300 MG, QOW
     Route: 058
     Dates: start: 20190717

REACTIONS (8)
  - Dyspnoea [Unknown]
  - Nausea [Unknown]
  - Urticaria [Unknown]
  - Skin fissures [Unknown]
  - Therapeutic response decreased [Unknown]
  - Somnolence [Unknown]
  - Malaise [Unknown]
  - Migraine [Not Recovered/Not Resolved]

NARRATIVE: CASE EVENT DATE: 2019
